FAERS Safety Report 19029453 (Version 1)
Quarter: 2021Q1

REPORT INFORMATION
  Report Type: Spontaneous
  Country: CN (occurrence: CN)
  Receive Date: 20210318
  Receipt Date: 20210318
  Transmission Date: 20210420
  Serious: Yes (Other)
  Sender: FDA-Public Use
  Company Number: CN-PURDUE-USA-2021-0234806

PATIENT
  Age: 62 Year
  Sex: Female
  Weight: 45 kg

DRUGS (3)
  1. MORPHINE HYDROCHLORIDE [Suspect]
     Active Substance: MORPHINE HYDROCHLORIDE
     Indication: ANALGESIC THERAPY
     Dosage: 10 MG, DAILY
     Route: 058
     Dates: start: 20201229, end: 20210114
  2. CIPROFLOXACIN LACTATE AND SODIUM CHLORIDE [Concomitant]
     Indication: PROPHYLAXIS
     Dosage: 0.2 G, Q12H
     Route: 041
     Dates: start: 20210112, end: 20210114
  3. OXYCODONE HYDROCHLORIDE. [Suspect]
     Active Substance: OXYCODONE HYDROCHLORIDE
     Indication: ANALGESIC THERAPY
     Dosage: 200 MG, Q12H
     Route: 048
     Dates: start: 20201225, end: 20210114

REACTIONS (4)
  - Pruritus [Unknown]
  - Toxicity to various agents [Unknown]
  - Altered state of consciousness [Recovering/Resolving]
  - Depressed level of consciousness [Recovering/Resolving]

NARRATIVE: CASE EVENT DATE: 20210114
